FAERS Safety Report 25232024 (Version 1)
Quarter: 2025Q2

REPORT INFORMATION
  Report Type: Spontaneous
  Country: US (occurrence: US)
  Receive Date: 20250423
  Receipt Date: 20250423
  Transmission Date: 20250716
  Serious: Yes (Other)
  Sender: IPSEN BIOPHARMACEUTICALS, INC.
  Company Number: US-IPSEN Group, Research and Development-2025-06283

PATIENT
  Age: 57 Year
  Sex: Male

DRUGS (2)
  1. DYSPORT [Suspect]
     Active Substance: ABOBOTULINUMTOXINA
     Indication: Paraplegia
     Route: 030
  2. DYSPORT [Suspect]
     Active Substance: ABOBOTULINUMTOXINA
     Indication: Muscle spasticity

REACTIONS (8)
  - Pneumonia aspiration [Unknown]
  - Prescribed overdose [Unknown]
  - Injection site erythema [Unknown]
  - Injection site swelling [Unknown]
  - Neck pain [Unknown]
  - Headache [Unknown]
  - Asthenia [Unknown]
  - Hypoaesthesia [Unknown]
